FAERS Safety Report 5345973-8 (Version None)
Quarter: 2007Q2

REPORT INFORMATION
  Report Type: 
  Country: None (occurrence: None)
  Receive Date: 20070426
  Receipt Date: 20061011
  Transmission Date: 20071010
  Serious: Yes (Other)
  Sender: FDA-Public Use
  Company Number: US-JNJFOC-20061003122

PATIENT
  Age: 84 Year
  Sex: Male
  Weight: 79.3795 kg

DRUGS (5)
  1. RAZADYNE ER [Suspect]
     Indication: DEMENTIA ALZHEIMER'S TYPE
     Dosage: , 1 IN 1 DAY, ORAL
     Route: 048
     Dates: start: 20060201, end: 20060901
  2. LOPRESSOR [Concomitant]
  3. PROVIGIL [Concomitant]
  4. HYZAAR (HYZAAR) TABLET [Concomitant]
  5. BABY ASA (ACETYLSALICYLIC ACID) TABLET [Concomitant]

REACTIONS (4)
  - BRADYCARDIA [None]
  - HYPERHIDROSIS [None]
  - HYPOKINESIA [None]
  - TREMOR [None]
